FAERS Safety Report 9831825 (Version 1)
Quarter: 2014Q1

REPORT INFORMATION
  Report Type: Spontaneous
  Country: BR (occurrence: BR)
  Receive Date: 20140121
  Receipt Date: 20140121
  Transmission Date: 20141002
  Serious: Yes (Other)
  Sender: FDA-Public Use
  Company Number: BR-AMGEN-BRASP2014003632

PATIENT
  Age: 32 Year
  Sex: Female
  Weight: 76 kg

DRUGS (5)
  1. ENBREL [Suspect]
     Indication: RHEUMATOID ARTHRITIS
     Dosage: UNSPECIFIED DOSE, ONCE WEEKLY
     Route: 058
     Dates: start: 2001, end: 201303
  2. SELOKEN /00376902/ [Suspect]
     Indication: HYPERTENSION
     Dosage: UNSPECIFIED DOSE, DAILY
     Route: 048
     Dates: start: 2001
  3. LEVOID [Suspect]
     Indication: PRODUCT USED FOR UNKNOWN INDICATION
     Dosage: UNSPECIFIED DOSE, DAILY
     Route: 048
     Dates: start: 2001
  4. METHOTREXATE SODIUM [Concomitant]
     Indication: RHEUMATOID ARTHRITIS
     Dosage: UNK
     Dates: start: 2001
  5. DEFLAZACORT [Concomitant]
     Indication: RHEUMATOID ARTHRITIS
     Dosage: 6 MG, UNK
     Route: 048
     Dates: start: 2005

REACTIONS (4)
  - Rheumatoid arthritis [Recovering/Resolving]
  - Labyrinthitis [Recovered/Resolved]
  - Pain in extremity [Not Recovered/Not Resolved]
  - Local swelling [Not Recovered/Not Resolved]
